FAERS Safety Report 13433326 (Version 3)
Quarter: 2017Q2

REPORT INFORMATION
  Report Type: Report from Study
  Country: US (occurrence: US)
  Receive Date: 20170412
  Receipt Date: 20170609
  Transmission Date: 20170830
  Serious: Yes (Disabling)
  Sender: FDA-Public Use
  Company Number: US-SA-2017SA046161

PATIENT
  Age: 46 Year
  Sex: Male
  Weight: 87 kg

DRUGS (4)
  1. SAR231893 [Suspect]
     Active Substance: DUPILUMAB
     Indication: DERMATITIS ATOPIC
     Route: 058
     Dates: start: 201512, end: 20161013
  2. SAR231893 [Suspect]
     Active Substance: DUPILUMAB
     Indication: DERMATITIS ATOPIC
     Route: 058
     Dates: start: 20151209, end: 20151209
  3. SAR231893 [Suspect]
     Active Substance: DUPILUMAB
     Indication: DERMATITIS ATOPIC
     Dosage: FREQUENCY: EVERY 2 WEEKS
     Route: 058
     Dates: end: 20170523
  4. SAR231893 [Suspect]
     Active Substance: DUPILUMAB
     Indication: DERMATITIS ATOPIC
     Dosage: FREQUENCY: EVERY 3-4 WEEKS.
     Route: 058
     Dates: start: 20170106

REACTIONS (1)
  - Ectropion [Not Recovered/Not Resolved]

NARRATIVE: CASE EVENT DATE: 201610
